FAERS Safety Report 7518319 (Version 5)
Quarter: 2013Q1

REPORT INFORMATION
  Report Type: Report from Study
  Country: HU (occurrence: HU)
  Receive Date: 20100802
  Receipt Date: 20130211
  Transmission Date: 20140127
  Serious: Yes (Life-Threatening, Hospitalization)
  Sender: FDA-Public Use
  Company Number: HU-BRISTOL-MYERS SQUIBB COMPANY-15214901

PATIENT
  Age: 66 Year
  Sex: Male
  Weight: 65 kg

DRUGS (22)
  1. CISPLATIN [Suspect]
     Indication: NON-SMALL CELL LUNG CANCER
     Dosage: INTERRUPTED ON 9JUL10?RESTARTED ON 22JUL10 AT REDUCED DOSE 56 MG/M2
     Route: 042
     Dates: start: 20100618
  2. NECITUMUMAB [Suspect]
     Indication: NON-SMALL CELL LUNG CANCER
     Dosage: 22JUL2010-UNK
     Route: 042
     Dates: start: 20100618, end: 20100625
  3. ALIMTA [Suspect]
     Indication: NON-SMALL CELL LUNG CANCER
     Dosage: INTERRUPTED ON 9JUL10?RESTARTED ON 22JUL10 AT REDUCED DOSE 375 MG/M2
     Route: 042
     Dates: start: 20100618
  4. ZOFRAN [Suspect]
     Indication: PROPHYLAXIS OF NAUSEA AND VOMITING
     Route: 065
     Dates: start: 20100618, end: 20100624
  5. SERETIDE [Concomitant]
     Indication: CHRONIC OBSTRUCTIVE PULMONARY DISEASE
     Route: 065
     Dates: start: 20100530
  6. SPIRIVA [Concomitant]
     Indication: CHRONIC OBSTRUCTIVE PULMONARY DISEASE
     Route: 065
     Dates: start: 20100530
  7. VENTOLIN [Concomitant]
     Indication: CHRONIC OBSTRUCTIVE PULMONARY DISEASE
     Route: 065
     Dates: start: 20100530
  8. THEOSPIREX [Concomitant]
     Indication: CHRONIC OBSTRUCTIVE PULMONARY DISEASE
     Route: 065
     Dates: start: 20100401, end: 20100630
  9. AMBROXOL [Concomitant]
     Indication: CHRONIC OBSTRUCTIVE PULMONARY DISEASE
     Route: 065
     Dates: start: 20100401, end: 20100625
  10. ANDAXIN [Concomitant]
     Indication: ALCOHOLISM
     Route: 065
     Dates: start: 20100401, end: 20100625
  11. TIAPRIDAL [Concomitant]
     Indication: ALCOHOLISM
     Dosage: THERAPY DATES:01APR2010 TO 30JUN10^?AGAIN FROM 05JUL10-ONG
     Route: 065
     Dates: start: 20100401
  12. FOLIC ACID [Concomitant]
     Indication: PREMEDICATION
     Route: 065
     Dates: start: 20100610, end: 20100630
  13. MEDROL [Concomitant]
     Indication: PREMEDICATION
     Route: 065
     Dates: start: 20100617, end: 20100619
  14. SODIUM CHLORIDE [Concomitant]
     Indication: RENAL FAILURE
     Route: 065
     Dates: start: 20100625, end: 20100625
  15. MEGACE [Concomitant]
     Indication: DECREASED APPETITE
     Dosage: JUL10-ONG
     Route: 065
     Dates: start: 20100625, end: 20100630
  16. MEGACE [Concomitant]
     Indication: PROPHYLAXIS
     Dosage: JUL10-ONG
     Route: 065
     Dates: start: 20100625, end: 20100630
  17. DALACIN [Concomitant]
     Indication: RASH
     Route: 065
     Dates: start: 20100625
  18. ELOCOM [Concomitant]
     Indication: RASH
     Route: 065
     Dates: start: 20100625
  19. QUAMATEL [Concomitant]
     Indication: PROPHYLAXIS AGAINST GASTROINTESTINAL ULCER
     Route: 065
     Dates: start: 20100630
  20. CLEXANE [Concomitant]
     Indication: THROMBOSIS PROPHYLAXIS
     Route: 065
     Dates: start: 20100630
  21. BETALOC [Concomitant]
     Indication: ATRIAL FIBRILLATION
     Route: 065
     Dates: start: 20100630
  22. METOPROLOL [Concomitant]
     Indication: ATRIAL FIBRILLATION
     Route: 065
     Dates: start: 20100630

REACTIONS (3)
  - Haematotoxicity [Unknown]
  - Ileus paralytic [Recovered/Resolved]
  - Renal failure [Unknown]
